FAERS Safety Report 9660597 (Version 2)
Quarter: 2013Q4

REPORT INFORMATION
  Report Type: Spontaneous
  Country: FR (occurrence: FR)
  Receive Date: 20131031
  Receipt Date: 20131122
  Transmission Date: 20140711
  Serious: Yes (Death, Life-Threatening)
  Sender: FDA-Public Use
  Company Number: FR-ALEXION PHARMACEUTICALS INC.-A201302815

PATIENT
  Age: 79 Year
  Sex: Male

DRUGS (11)
  1. SOLIRIS 300MG [Suspect]
     Indication: HAEMOLYTIC URAEMIC SYNDROME
     Dosage: 900 MG, SINGLE
     Route: 042
     Dates: start: 20130905, end: 20130905
  2. SOLIRIS 300MG [Suspect]
     Dosage: 1200 MG, SINGLE
     Route: 042
     Dates: start: 20130912, end: 20130912
  3. SOLIRIS 300MG [Suspect]
     Dosage: 1200 MG, SINGLE
     Route: 042
     Dates: start: 20130918, end: 20130918
  4. SOLIRIS 300MG [Suspect]
     Dosage: 1200 MG, SINGLE
     Route: 042
     Dates: start: 20130930, end: 20130930
  5. SOLIRIS 300MG [Suspect]
     Dosage: 600 MG, SINGLE
     Route: 042
     Dates: start: 20130926, end: 20130926
  6. SOLIRIS 300MG [Suspect]
     Dosage: 600 MG, SINGLE
     Route: 042
     Dates: start: 20130927, end: 20130927
  7. SOLIRIS 300MG [Suspect]
     Dosage: 600 MG, SINGLE
     Route: 042
     Dates: start: 20130928, end: 20130928
  8. LEFLUNOMIDE [Concomitant]
     Indication: RHEUMATOID ARTHRITIS
     Dosage: 1 TAB/2DAYS
     Route: 048
  9. PREDNISONE [Concomitant]
     Indication: RHEUMATOID ARTHRITIS
     Dosage: 5 MG, QD
     Route: 048
     Dates: end: 20130920
  10. PREDNISONE [Concomitant]
     Dosage: 75 MG, QD
     Route: 048
     Dates: start: 20130922
  11. ROVAMYCINE [Concomitant]
     Dosage: UNK
     Dates: start: 20130920, end: 20130930

REACTIONS (6)
  - Cardiac arrest [Fatal]
  - Encephalopathy [Fatal]
  - Weight increased [Unknown]
  - Ascites [Unknown]
  - Dyspnoea [Unknown]
  - Oedema peripheral [Unknown]
